FAERS Safety Report 9130062 (Version 2)
Quarter: 2013Q1

REPORT INFORMATION
  Report Type: Spontaneous
  Country: US (occurrence: US)
  Receive Date: 20130228
  Receipt Date: 20130326
  Transmission Date: 20140127
  Serious: Yes (Hospitalization, Other)
  Sender: FDA-Public Use
  Company Number: US-ELI_LILLY_AND_COMPANY-US201302006421

PATIENT
  Age: 12 Year
  Sex: Male
  Weight: 34 kg

DRUGS (4)
  1. HUMATROPE [Suspect]
     Indication: DWARFISM
     Dosage: 1.7 MG, 6 DAYS / WEEK
     Route: 058
     Dates: start: 20100713, end: 20130215
  2. CLONIDINE HYDROCHLORIDE [Concomitant]
     Dosage: UNK
     Dates: start: 201211
  3. SYNTHROID [Concomitant]
     Indication: HYPOTHYROIDISM
     Dosage: 25MG, QD
  4. PROZAC [Concomitant]

REACTIONS (1)
  - Medulloblastoma recurrent [Not Recovered/Not Resolved]
